FAERS Safety Report 18575393 (Version 1)
Quarter: 2020Q4

REPORT INFORMATION
  Report Type: Spontaneous
  Country: PL (occurrence: PL)
  Receive Date: 20201203
  Receipt Date: 20201203
  Transmission Date: 20210114
  Serious: Yes (Hospitalization)
  Sender: FDA-Public Use
  Company Number: PL-PFIZER INC-2020475925

PATIENT
  Age: 80 Year
  Sex: Female
  Weight: 100 kg

DRUGS (5)
  1. MEROPENEM. [Suspect]
     Active Substance: MEROPENEM
     Indication: PANCREATITIS
     Dosage: 2 G, 3X/DAY
     Route: 042
     Dates: start: 20170727, end: 20170803
  2. FRAXIPARINE [Concomitant]
     Active Substance: NADROPARIN CALCIUM
     Dosage: UNK
  3. FUROSEMID [Concomitant]
     Active Substance: FUROSEMIDE
     Dosage: UNK
  4. SPIRONOL [Concomitant]
     Active Substance: SPIRONOLACTONE
     Dosage: UNK
  5. KETONAL [KETOPROFEN] [Concomitant]
     Active Substance: KETOPROFEN
     Dosage: UNK

REACTIONS (2)
  - Rash maculo-papular [Recovering/Resolving]
  - Rash pruritic [Recovering/Resolving]

NARRATIVE: CASE EVENT DATE: 20170730
